FAERS Safety Report 20851352 (Version 1)
Quarter: 2022Q2

REPORT INFORMATION
  Report Type: Spontaneous
  Country: US (occurrence: US)
  Receive Date: 20220519
  Receipt Date: 20220519
  Transmission Date: 20220721
  Serious: Yes (Hospitalization, Other)
  Sender: FDA-Public Use
  Company Number: US-009507513-2205USA005003

PATIENT
  Age: 35 Year
  Sex: Female

DRUGS (7)
  1. BRIDION [Suspect]
     Active Substance: SUGAMMADEX
     Indication: Hysterectomy
     Dosage: 300 MILLIGRAM
  2. DECADRON [Suspect]
     Active Substance: DEXAMETHASONE
     Indication: Hysterectomy
  3. ROCURONIUM [Suspect]
     Active Substance: ROCURONIUM BROMIDE
     Indication: Hysterectomy
  4. SEVOFLURANE [Suspect]
     Active Substance: SEVOFLURANE
     Indication: Hysterectomy
  5. PROPOFOL [Suspect]
     Active Substance: PROPOFOL
     Indication: Hysterectomy
  6. FENTANYL [Suspect]
     Active Substance: FENTANYL
     Indication: Hysterectomy
  7. ZOFRAN [Suspect]
     Active Substance: ONDANSETRON HYDROCHLORIDE
     Indication: Hysterectomy

REACTIONS (2)
  - Anaphylactic reaction [Recovered/Resolved]
  - Bradycardia [Recovered/Resolved]
